FAERS Safety Report 5912976-1 (Version None)
Quarter: 2008Q4

REPORT INFORMATION
  Report Type: 
  Country: None (occurrence: None)
  Receive Date: 20081008
  Receipt Date: 20080926
  Transmission Date: 20090506
  Serious: Yes (Other)
  Sender: FDA-Public Use
  Company Number: US-PFIZER INC-2008007899

PATIENT
  Sex: Female
  Weight: 115 kg

DRUGS (5)
  1. LYRICA [Suspect]
     Indication: BONE PAIN
     Dates: start: 20050101
  2. LYRICA [Suspect]
     Indication: FIBROMYALGIA
  3. INSULIN [Concomitant]
     Indication: TYPE 2 DIABETES MELLITUS
  4. BENICAR [Concomitant]
     Indication: HYPERTENSION
  5. CYMBALTA [Concomitant]
     Indication: DEPRESSION

REACTIONS (6)
  - ASTIGMATISM [None]
  - CATARACT [None]
  - DRUG INEFFECTIVE [None]
  - FIBROMYALGIA [None]
  - VISION BLURRED [None]
  - WEIGHT INCREASED [None]
